FAERS Safety Report 18360685 (Version 2)
Quarter: 2020Q4

REPORT INFORMATION
  Report Type: Spontaneous
  Country: US (occurrence: US)
  Receive Date: 20201008
  Receipt Date: 20201022
  Transmission Date: 20210114
  Serious: Yes (Hospitalization, Other)
  Sender: FDA-Public Use
  Company Number: US-ASTRAZENECA-2020SF23887

PATIENT
  Sex: Female

DRUGS (1)
  1. FASENRA [Suspect]
     Active Substance: BENRALIZUMAB
     Indication: ASTHMA
     Route: 058

REACTIONS (11)
  - Staphylococcal infection [Unknown]
  - Neck pain [Unknown]
  - Skin irritation [Unknown]
  - Pyrexia [Recovered/Resolved]
  - Target skin lesion [Unknown]
  - Arthralgia [Unknown]
  - Pain in extremity [Unknown]
  - Cellulitis [Recovered/Resolved]
  - Lyme disease [Unknown]
  - Joint swelling [Unknown]
  - Headache [Recovered/Resolved]

NARRATIVE: CASE EVENT DATE: 2020
